FAERS Safety Report 5367676-6 (Version None)
Quarter: 2007Q2

REPORT INFORMATION
  Report Type: 
  Country: None (occurrence: None)
  Receive Date: 20070622
  Receipt Date: 20070102
  Transmission Date: 20071010
  Serious: No
  Sender: FDA-Public Use
  Company Number: US-ASTRAZENECA-2007UW00144

PATIENT
  Age: 73 Year
  Sex: Female

DRUGS (4)
  1. PULMICORT RESPULES [Suspect]
     Indication: ASTHMA
     Route: 055
     Dates: start: 20060701
  2. BLOOD THINNER [Concomitant]
  3. THYROID TAB [Concomitant]
  4. UNKNOWN HEART MEDICATION [Concomitant]

REACTIONS (2)
  - LUNG DISORDER [None]
  - PETECHIAE [None]
